FAERS Safety Report 17425679 (Version 1)
Quarter: 2020Q1

REPORT INFORMATION
  Report Type: Spontaneous
  Country: AU (occurrence: AU)
  Receive Date: 20200217
  Receipt Date: 20200217
  Transmission Date: 20200409
  Serious: Yes (Other)
  Sender: FDA-Public Use
  Company Number: AU-ASTRAZENECA-2020SE22598

PATIENT
  Age: 20660 Day
  Sex: Female

DRUGS (1)
  1. FASLODEX [Suspect]
     Active Substance: FULVESTRANT
     Indication: BREAST CANCER FEMALE
     Dosage: 500.0MG UNKNOWN
     Route: 030
     Dates: start: 20200115, end: 20200201

REACTIONS (1)
  - Malignant neoplasm progression [Recovered/Resolved]

NARRATIVE: CASE EVENT DATE: 20200115
